FAERS Safety Report 21302696 (Version 2)
Quarter: 2022Q4

REPORT INFORMATION
  Report Type: Spontaneous
  Country: CN (occurrence: CN)
  Receive Date: 20220907
  Receipt Date: 20221018
  Transmission Date: 20230113
  Serious: Yes (Hospitalization)
  Sender: FDA-Public Use
  Company Number: CN-PFIZER INC-PV202200056927

PATIENT
  Age: 10 Month
  Sex: Female
  Weight: 11.2 kg

DRUGS (2)
  1. ZYVOX [Suspect]
     Active Substance: LINEZOLID
     Indication: Therapeutic procedure
     Dosage: 120 MG, 3X/DAY
     Route: 048
     Dates: start: 20220714, end: 20220817
  2. LINEZOLID [Suspect]
     Active Substance: LINEZOLID
     Indication: Therapeutic procedure
     Dosage: 120 MG, 3X/DAY
     Route: 041
     Dates: start: 20220709, end: 20220714

REACTIONS (2)
  - Agranulocytosis [Not Recovered/Not Resolved]
  - Off label use [Unknown]

NARRATIVE: CASE EVENT DATE: 20220714
